FAERS Safety Report 5662251-8 (Version None)
Quarter: 2008Q1

REPORT INFORMATION
  Report Type: 
  Country: None (occurrence: None)
  Receive Date: 20080312
  Receipt Date: 20080305
  Transmission Date: 20080703
  Serious: Yes (Other)
  Sender: FDA-Public Use
  Company Number: DE-PFIZER INC-2008010406

PATIENT
  Sex: Female
  Weight: 82 kg

DRUGS (6)
  1. CHANTIX [Suspect]
     Indication: SMOKING CESSATION THERAPY
     Dosage: DAILY DOSE:2MG
     Route: 048
  2. CHANTIX [Suspect]
     Indication: NICOTINE DEPENDENCE
  3. ALL OTHER THERAPEUTIC PRODUCTS [Concomitant]
  4. ZYPREXA [Concomitant]
     Indication: SCHIZOPHRENIA
     Dosage: DAILY DOSE:30MG
     Route: 048
  5. ANAFRANIL [Concomitant]
     Dosage: DAILY DOSE:75MG
     Route: 048
  6. HALDOL [Concomitant]
     Indication: SCHIZOPHRENIA
     Dosage: DAILY DOSE:5MG
     Route: 048

REACTIONS (1)
  - PSYCHOTIC DISORDER [None]
